FAERS Safety Report 20890319 (Version 1)
Quarter: 2022Q2

REPORT INFORMATION
  Report Type: Spontaneous
  Country: TW (occurrence: TW)
  Receive Date: 20220530
  Receipt Date: 20220530
  Transmission Date: 20220720
  Serious: Yes (Other)
  Sender: FDA-Public Use
  Company Number: TW-SUN PHARMACEUTICAL INDUSTRIES LTD-2022RR-338408

PATIENT
  Age: 43 Year
  Sex: Male

DRUGS (3)
  1. METFORMIN [Suspect]
     Active Substance: METFORMIN HYDROCHLORIDE
     Indication: Type 2 diabetes mellitus
     Dosage: 1700 MILLIGRAM, DAILY
     Route: 065
  2. Vidagliptin [Concomitant]
     Indication: Type 2 diabetes mellitus
     Dosage: 100 MILLIGRAM, DAILY
     Route: 065
  3. ACYCLOVIR [Concomitant]
     Active Substance: ACYCLOVIR
     Indication: Encephalitis viral
     Dosage: UNK
     Route: 042

REACTIONS (3)
  - MELAS syndrome [Unknown]
  - Agnosia [Unknown]
  - Diarrhoea [Unknown]
